FAERS Safety Report 15132922 (Version 1)
Quarter: 2018Q3

REPORT INFORMATION
  Report Type: Spontaneous
  Country: CN (occurrence: CN)
  Receive Date: 20180712
  Receipt Date: 20180712
  Transmission Date: 20181010
  Serious: Yes (Life-Threatening)
  Sender: FDA-Public Use
  Company Number: CN-009507513-1807CHN003123

PATIENT
  Age: 84 Year
  Sex: Female
  Weight: 45 kg

DRUGS (2)
  1. SODIUM CHLORIDE. [Concomitant]
     Active Substance: SODIUM CHLORIDE
     Indication: MEDICATION DILUTION
     Dosage: 100 ML, BID
     Route: 041
     Dates: start: 20180504, end: 20180505
  2. TIENAM [Suspect]
     Active Substance: CILASTATIN SODIUM\IMIPENEM
     Indication: LUNG INFECTION
     Dosage: 0.5 G, BID
     Route: 041
     Dates: start: 20180504, end: 20180505

REACTIONS (1)
  - Epilepsy [Unknown]

NARRATIVE: CASE EVENT DATE: 20180505
